FAERS Safety Report 5659481-8 (Version None)
Quarter: 2008Q1

REPORT INFORMATION
  Report Type: 
  Country: None (occurrence: None)
  Receive Date: 20080311
  Receipt Date: 20080304
  Transmission Date: 20080703
  Serious: Yes (Other)
  Sender: FDA-Public Use
  Company Number: PHHY2008JP02515

PATIENT
  Age: 72 Year
  Sex: Male

DRUGS (4)
  1. LAMISIL [Suspect]
     Dosage: 125 MG/ DAY
     Route: 048
  2. GLYBURIDE [Concomitant]
     Route: 048
  3. ADONA [Concomitant]
     Dosage: 30 MG
     Route: 048
  4. CARNACULIN [Concomitant]
     Dosage: 75 MG
     Route: 048

REACTIONS (2)
  - RETINAL HAEMORRHAGE [None]
  - RETINAL VEIN OCCLUSION [None]
